FAERS Safety Report 8326169 (Version 2)
Quarter: 2013Q2

REPORT INFORMATION
  Report Type: Spontaneous
  Country: US (occurrence: US)
  Receive Date: 20120106
  Receipt Date: 20130417
  Transmission Date: 20140414
  Serious: Yes (Hospitalization)
  Sender: FDA-Public Use
  Company Number: US-ELI_LILLY_AND_COMPANY-US201201000578

PATIENT
  Age: 68 Year
  Sex: Female

DRUGS (8)
  1. FORTEO [Suspect]
     Indication: OSTEOPOROSIS
     Dosage: 20 UG, QD
     Route: 065
     Dates: start: 201106
  2. FORTEO [Suspect]
     Dosage: 20 UG, QD
     Route: 065
  3. FORTEO [Suspect]
     Dosage: 20 UG, QD
     Route: 065
  4. OMEPRAZOLE [Concomitant]
  5. MELOXICAM [Concomitant]
  6. POTASSIUM [Concomitant]
  7. CALCIUM [Concomitant]
     Dosage: UNK, QID
  8. CALCIUM [Concomitant]
     Dosage: UNK, TID

REACTIONS (5)
  - Arthropathy [Recovering/Resolving]
  - Bone density decreased [Unknown]
  - Blood calcium increased [Unknown]
  - Spinal disorder [Unknown]
  - Arthropathy [Unknown]
